FAERS Safety Report 6087098-2 (Version None)
Quarter: 2009Q1

REPORT INFORMATION
  Report Type: 
  Country: None (occurrence: None)
  Receive Date: 20090223
  Receipt Date: 20090213
  Transmission Date: 20090719
  Serious: Yes (Hospitalization)
  Sender: FDA-Public Use
  Company Number: US-ELI_LILLY_AND_COMPANY-US200902003665

PATIENT
  Sex: Female
  Weight: 110 kg

DRUGS (8)
  1. BYETTA [Suspect]
     Indication: TYPE 2 DIABETES MELLITUS
     Dosage: 5 UG, 2/D
     Route: 058
     Dates: start: 20070201, end: 20071023
  2. BYETTA [Suspect]
     Dosage: 5 UG, 2/D
     Route: 058
     Dates: start: 20071031, end: 20080301
  3. METFORMIN [Concomitant]
     Indication: TYPE 2 DIABETES MELLITUS
     Dosage: 2000 MG, DAILY (1/D)
  4. LANTUS [Concomitant]
     Indication: TYPE 2 DIABETES MELLITUS
     Dosage: 20 U, UNKNOWN
  5. DIOVAN [Concomitant]
     Indication: BLOOD PRESSURE
     Dosage: 160 MG, DAILY (1/D)
  6. LEVOTHYROXINE SODIUM [Concomitant]
     Indication: THYROID DISORDER
     Dosage: 0.125 MG, DAILY (1/D)
  7. XOPENEX [Concomitant]
     Dosage: UNK, AS NEEDED
  8. PULMICORT-100 [Concomitant]
     Dosage: UNK, AS NEEDED

REACTIONS (5)
  - BACK PAIN [None]
  - DECREASED APPETITE [None]
  - MOBILITY DECREASED [None]
  - STRESS [None]
  - VOMITING [None]
